FAERS Safety Report 20952447 (Version 2)
Quarter: 2022Q2

REPORT INFORMATION
  Report Type: Spontaneous
  Country: MX (occurrence: MX)
  Receive Date: 20220613
  Receipt Date: 20220629
  Transmission Date: 20220721
  Serious: Yes (Other)
  Sender: FDA-Public Use
  Company Number: MX-ORGANON-O2206MEX001109

PATIENT
  Sex: Female

DRUGS (1)
  1. ETONOGESTREL [Suspect]
     Active Substance: ETONOGESTREL
     Dosage: 1 IMPLANT

REACTIONS (5)
  - Complication of device removal [Unknown]
  - Device issue [Unknown]
  - Device deployment issue [Unknown]
  - Complication associated with device [Unknown]
  - Complication of device removal [Not Recovered/Not Resolved]
